FAERS Safety Report 6016679-7 (Version None)
Quarter: 2008Q4

REPORT INFORMATION
  Report Type: 
  Country: None (occurrence: None)
  Receive Date: 20081218
  Receipt Date: 20081201
  Transmission Date: 20090506
  Serious: Yes (Other)
  Sender: FDA-Public Use
  Company Number: 8040235

PATIENT
  Age: 23 Year
  Sex: Female

DRUGS (5)
  1. KEPPRA [Suspect]
  2. HUMAN PAPILLOMAVIRUS RECOMBINANT VACCINE NOS [Suspect]
  3. TEGRETOL [Suspect]
  4. BENZODIAZEPINE [Concomitant]
  5. EPILIM [Concomitant]

REACTIONS (3)
  - HEPATIC FAILURE [None]
  - METABOLIC ENCEPHALOPATHY [None]
  - RENAL FAILURE ACUTE [None]
